FAERS Safety Report 9735213 (Version 2)
Quarter: 2013Q4

REPORT INFORMATION
  Report Type: Spontaneous
  Country: JP (occurrence: None)
  Receive Date: 20131204
  Receipt Date: 20131231
  Transmission Date: 20140711
  Serious: Yes (Hospitalization)
  Sender: FDA-Public Use
  Company Number: ABR_01291_2013

PATIENT
  Age: 25 Month
  Sex: Female

DRUGS (2)
  1. ERYTHROMYCIN (ERYTHROMYCIN) [Suspect]
     Indication: PRODUCT USED FOR UNKNOWN INDICATION
     Dosage: UNKNOWN, DF
  2. ACETAMINOPHEN (ACETAMINOPHEN) [Suspect]
     Indication: PRODUCT USED FOR UNKNOWN INDICATION
     Dosage: UNKNOWN, DF

REACTIONS (2)
  - Stevens-Johnson syndrome [None]
  - Obstructive airways disorder [None]
